FAERS Safety Report 9206437 (Version 1)
Quarter: 2013Q2

REPORT INFORMATION
  Report Type: Spontaneous
  Country: AU (occurrence: AU)
  Receive Date: 20130403
  Receipt Date: 20130403
  Transmission Date: 20140414
  Serious: Yes (Disabling)
  Sender: FDA-Public Use
  Company Number: AU-SANOFI-AVENTIS-2013SA015224

PATIENT
  Age: 67 Year
  Sex: Female

DRUGS (9)
  1. LANTUS [Suspect]
     Indication: BLOOD GLUCOSE INCREASED
     Dosage: DOSE:30 UNIT(S)
     Route: 058
     Dates: start: 20130115, end: 20130221
  2. LANTUS [Suspect]
     Indication: TYPE 2 DIABETES MELLITUS
     Dosage: DOSE:30 UNIT(S)
     Route: 058
     Dates: start: 20130115, end: 20130221
  3. AVANZA [Concomitant]
  4. AVAPRO [Concomitant]
  5. COVERAM [Concomitant]
  6. JANUMET [Concomitant]
  7. LIPIDIL [Concomitant]
  8. LIVIAL [Concomitant]
  9. ESOMEPRAZOLE [Concomitant]

REACTIONS (3)
  - Nausea [Recovered/Resolved]
  - Blood glucose increased [Unknown]
  - Drug hypersensitivity [Unknown]
